FAERS Safety Report 18349461 (Version 1)
Quarter: 2020Q4

REPORT INFORMATION
  Report Type: Spontaneous
  Country: PT (occurrence: PT)
  Receive Date: 20201006
  Receipt Date: 20201006
  Transmission Date: 20210114
  Serious: Yes (Other)
  Sender: FDA-Public Use
  Company Number: NVSC2020PT263778

PATIENT
  Sex: Female

DRUGS (4)
  1. FOLINIC ACID [Suspect]
     Active Substance: LEUCOVORIN
     Indication: CHEMOTHERAPY
     Dosage: UNK (FOLFOX REGIMEN)
     Route: 065
     Dates: end: 20200618
  2. XELODA [Suspect]
     Active Substance: CAPECITABINE
     Indication: CHEMOTHERAPY
     Dosage: UNK (CAPOX REGIMEN)
     Route: 065
     Dates: end: 20200618
  3. OXALIPLATIN. [Suspect]
     Active Substance: OXALIPLATIN
     Indication: CHEMOTHERAPY
     Dosage: UNK (CAPOX, FOLFOX REGIMEN)
     Route: 065
     Dates: end: 20200618
  4. FLUOROURACIL. [Suspect]
     Active Substance: FLUOROURACIL
     Indication: CHEMOTHERAPY
     Dosage: UNK (FOLFOX REGIMEN)
     Route: 065
     Dates: end: 20200618

REACTIONS (5)
  - Gastrointestinal disorder [Unknown]
  - Metastases to liver [Unknown]
  - Neoplasm malignant [Unknown]
  - Hepatic mass [Unknown]
  - Nodule [Unknown]

NARRATIVE: CASE EVENT DATE: 20200626
